FAERS Safety Report 6555623-0 (Version None)
Quarter: 2010Q1

REPORT INFORMATION
  Report Type: 
  Country: None (occurrence: None)
  Receive Date: 20100128
  Receipt Date: 20100122
  Transmission Date: 20100710
  Serious: Yes (Hospitalization)
  Sender: FDA-Public Use
  Company Number: TW-BRISTOL-MYERS SQUIBB COMPANY-14934731

PATIENT
  Age: 44 Year
  Sex: Male
  Weight: 49 kg

DRUGS (4)
  1. CETUXIMAB [Suspect]
     Indication: OESOPHAGEAL SQUAMOUS CELL CARCINOMA
     Dosage: 09-09DEC09:400MG/M2;16DEC09:250MG/M2. RECENT INFUSION ON 06JAN2010.
     Route: 042
     Dates: start: 20091209
  2. PACLITAXEL [Suspect]
     Indication: OESOPHAGEAL SQUAMOUS CELL CARCINOMA
     Dosage: RECENT INFUSION ON 07JAN2010.
     Route: 042
     Dates: start: 20091214
  3. CISPLATIN FOR INJ [Suspect]
     Indication: OESOPHAGEAL SQUAMOUS CELL CARCINOMA
     Dosage: MOST RECENT INFUSION IS ON 08JAN2010.
     Route: 042
     Dates: start: 20091215
  4. RADIOTHERAPY [Suspect]
     Indication: OESOPHAGEAL SQUAMOUS CELL CARCINOMA
     Dates: start: 20091214

REACTIONS (4)
  - CHEST DISCOMFORT [None]
  - DYSPHAGIA [None]
  - NAUSEA [None]
  - OROPHARYNGEAL PAIN [None]
